FAERS Safety Report 16802880 (Version 1)
Quarter: 2019Q3

REPORT INFORMATION
  Report Type: Spontaneous
  Country: US (occurrence: US)
  Receive Date: 20190913
  Receipt Date: 20190913
  Transmission Date: 20191005
  Serious: No
  Sender: FDA-Public Use
  Company Number: US-ROCHE-2341961

PATIENT

DRUGS (1)
  1. HERCEPTIN HYLECTA [Suspect]
     Active Substance: TRASTUZUMAB AND HYALURONIDASE-OYSK
     Indication: PRODUCT USED FOR UNKNOWN INDICATION
     Route: 058
     Dates: start: 20180104

REACTIONS (1)
  - Malaise [Unknown]
